FAERS Safety Report 7927959-X (Version None)
Quarter: 2011Q4

REPORT INFORMATION
  Report Type: 
  Country: None (occurrence: None)
  Receive Date: 20111118
  Receipt Date: 20111109
  Transmission Date: 20120403
  Serious: Yes (Other)
  Sender: FDA-Public Use
  Company Number: US-BAYER-201038107NA

PATIENT
  Age: 26 Year
  Sex: Female
  Weight: 160 kg

DRUGS (4)
  1. YASMIN [Suspect]
     Indication: CONTRACEPTION
     Dosage: 2 PACKS GIVEN DEC 2004
     Route: 048
     Dates: start: 20030101, end: 20060101
  2. YAZ [Suspect]
     Indication: CONTRACEPTION
     Dosage: UNK
  3. DROSPIRENONE AND ETHINYL ESTRADIOL [Suspect]
     Indication: CONTRACEPTION
  4. PRILOSEC [Concomitant]

REACTIONS (14)
  - MATERNAL EXPOSURE DURING DELIVERY [None]
  - PAIN [None]
  - COLITIS [None]
  - HEPATITIS ALCOHOLIC [None]
  - ABORTION [None]
  - INJECTION SITE PAIN [None]
  - GALLBLADDER DISORDER [None]
  - CHOLELITHIASIS [None]
  - CHOLECYSTITIS CHRONIC [None]
  - MULTIPLE INJURIES [None]
  - PREGNANCY ON ORAL CONTRACEPTIVE [None]
  - INJURY [None]
  - BILE DUCT STONE [None]
  - CHEST PAIN [None]
